FAERS Safety Report 18543711 (Version 1)
Quarter: 2020Q4

REPORT INFORMATION
  Report Type: Other
  Country: CA (occurrence: CA)
  Receive Date: 20201124
  Receipt Date: 20201124
  Transmission Date: 20210114
  Serious: Yes (Other)
  Sender: FDA-Public Use
  Company Number: CA-CELLTRION INC.-2020CA032018

PATIENT

DRUGS (31)
  1. LUMIGAN [Concomitant]
     Active Substance: BIMATOPROST
     Dosage: 1 GTT, 1 EVERY 1 DAY
     Route: 047
  2. ROSUVASTATIN. [Concomitant]
     Active Substance: ROSUVASTATIN
     Dosage: 5 MG,1 EVERY 1 DAY
     Route: 048
  3. CAPSAICIN. [Concomitant]
     Active Substance: CAPSAICIN
     Dosage: 0.025 PERCENT, 4 EVERY 1 DAY
     Route: 061
  4. SAXAGLIPTIN HYDROCHLORIDE. [Concomitant]
     Active Substance: SAXAGLIPTIN HYDROCHLORIDE
     Dosage: 5 MG, 1 EVERY 1 DAY
     Route: 048
  5. EURO D [Concomitant]
     Dosage: 1000 IU (INTERNATIONAL UNIT), 1 EVERY 1 DAY
     Route: 048
  6. INSULIN HUMAN [Concomitant]
     Active Substance: INSULIN HUMAN
     Dosage: 3 MG, 3 EVERY 1 DAY
     Route: 058
  7. PREDNISONE. [Concomitant]
     Active Substance: PREDNISONE
     Dosage: 60 MG, 1 EVERY 1 DAY
     Route: 048
  8. SPIRIVA [Concomitant]
     Active Substance: TIOTROPIUM BROMIDE MONOHYDRATE
     Dosage: 1 EVERY 1 DAY
  9. RITUXIMAB (UNKNOWN) [Suspect]
     Active Substance: RITUXIMAB
     Dosage: 500 MG
     Route: 042
  10. BENADRYL [Concomitant]
     Active Substance: DIPHENHYDRAMINE HYDROCHLORIDE
     Indication: PREMEDICATION
     Dosage: 50 MG
     Route: 048
  11. FUROSEMIDE. [Concomitant]
     Active Substance: FUROSEMIDE
     Dosage: 40 MG, 1 EVERY 1 DAY
     Route: 048
  12. QVAR [Concomitant]
     Active Substance: BECLOMETHASONE DIPROPIONATE
     Dosage: 100 MG, 2 EVERY 1 DAY
  13. SULFATRIM [Concomitant]
     Active Substance: SULFAMETHOXAZOLE\TRIMETHOPRIM
     Dosage: 800 MG, 3 EVERY 1 WEEK
     Route: 048
  14. RITUXIMAB (UNKNOWN) [Suspect]
     Active Substance: RITUXIMAB
     Indication: IMMUNOGLOBULIN G4 RELATED DISEASE
     Dosage: 1 G
     Route: 042
  15. ELIQUIS [Concomitant]
     Active Substance: APIXABAN
     Dosage: 5 MG, 2 EVERY  1 DAY
     Route: 048
  16. INSULIN (HUMAN) /INSULIN ISOPHANE HUMAN BIOSYNTHETIC [Concomitant]
     Dosage: 12 IU (INTERNATIONAL UNIT), 1 EVERY 1 DAY
     Route: 058
  17. METOPROLOL. [Concomitant]
     Active Substance: METOPROLOL
     Dosage: 12.5 MG, 2 EVERY 1 DAY
     Route: 048
  18. NASONEX [Concomitant]
     Active Substance: MOMETASONE FUROATE
     Dosage: 50 MG, 1 EVERY 1 DAY
     Route: 045
  19. PANTOLOC [PANTOPRAZOLE] [Concomitant]
     Active Substance: PANTOPRAZOLE SODIUM
     Dosage: 40 MG, 1 EVERY 1 DAY
     Route: 048
  20. TYLENOL [Concomitant]
     Active Substance: ACETAMINOPHEN
     Indication: PREMEDICATION
     Dosage: 650 MG
     Route: 048
  21. TYLENOL EXTRA STRENGTH [Concomitant]
     Active Substance: ACETAMINOPHEN
     Dosage: 1000 MG, 4 EVERY 1 DAY
     Route: 048
  22. VALSARTAN. [Concomitant]
     Active Substance: VALSARTAN
     Dosage: 40 MG, 1 EVERY 1 DAY
     Route: 048
  23. XYLOCAINE [Concomitant]
     Active Substance: LIDOCAINE HYDROCHLORIDE
     Dosage: 2 PERCENT, 6 EVERY 1 DAY
     Route: 061
  24. MACROGOL [Concomitant]
     Active Substance: POLYETHYLENE GLYCOLS
     Dosage: 17 G, 1 EVERY 1 DAY
     Route: 048
  25. DURELA [Concomitant]
     Active Substance: TRAMADOL HYDROCHLORIDE
     Dosage: 100 MG, 1 EVERY 1 DAY
     Route: 048
  26. PREGABALIN. [Concomitant]
     Active Substance: PREGABALIN
     Dosage: 100 MG, 2 EVERY 1 DAY
     Route: 048
  27. TRAMADOL. [Concomitant]
     Active Substance: TRAMADOL
     Dosage: 50 MG, 4 EVERY 1 DAY
     Route: 048
  28. MELATONIN [Concomitant]
     Active Substance: MELATONIN
     Dosage: 3 MG, 1 EVERY 1 DAY
     Route: 048
  29. METHYLPREDNISOLONE SODIUM SUCCINATE. [Concomitant]
     Active Substance: METHYLPREDNISOLONE SODIUM SUCCINATE
     Indication: PREMEDICATION
     Dosage: 100 MG
     Route: 042
  30. RISEDRONATE [Concomitant]
     Active Substance: RISEDRONATE SODIUM
     Dosage: 35 MG, 1 EVERY 1 WEEK
     Route: 048
  31. SYNTHROID [Concomitant]
     Active Substance: LEVOTHYROXINE SODIUM
     Dosage: 0.1 MG, 1 EVERY 1 DAY
     Route: 048

REACTIONS (2)
  - Spinal fracture [Unknown]
  - Off label use [Unknown]
